FAERS Safety Report 26154144 (Version 1)
Quarter: 2025Q4

REPORT INFORMATION
  Report Type: Spontaneous
  Country: CA (occurrence: CA)
  Receive Date: 20251215
  Receipt Date: 20251215
  Transmission Date: 20260118
  Serious: Yes (Death, Life-Threatening, Hospitalization, Disabling, Other)
  Sender: Haleon PLC
  Company Number: CA-HALEON-2278543

PATIENT
  Age: 44 Year
  Sex: Female

DRUGS (305)
  1. DICLOFENAC [Suspect]
     Active Substance: DICLOFENAC
     Indication: Product used for unknown indication
     Dosage: ROUTE OF ADMINISTRATION: UNKNOWN
  2. DICLOFENAC [Suspect]
     Active Substance: DICLOFENAC
     Dosage: ROUTE OF ADMINISTRATION: OPHTHALMIC
  3. DICLOFENAC DIETHYLAMINE [Suspect]
     Active Substance: DICLOFENAC DIETHYLAMINE
     Indication: Product used for unknown indication
     Dosage: ROUTE OF ADMINISTRATION: UNKNOWN
  4. DICLOFENAC DIETHYLAMINE [Suspect]
     Active Substance: DICLOFENAC DIETHYLAMINE
     Dosage: ROUTE OF ADMINISTRATION: UNKNOWN
  5. ADVIL [Suspect]
     Active Substance: IBUPROFEN
     Indication: Product used for unknown indication
     Dosage: ROUTE OF ADMINISTRATION: UNKNOWN
  6. DICLOFENAC POTASSIUM [Suspect]
     Active Substance: DICLOFENAC POTASSIUM
     Indication: Product used for unknown indication
  7. DICLOFENAC POTASSIUM [Suspect]
     Active Substance: DICLOFENAC POTASSIUM
     Dosage: ROUTE OF ADMINISTRATION: OTHER
  8. DICLOFENAC POTASSIUM [Suspect]
     Active Substance: DICLOFENAC POTASSIUM
     Dosage: ROUTE OF ADMINISTRATION: UNKNOWN
  9. DICLOFENAC POTASSIUM [Suspect]
     Active Substance: DICLOFENAC POTASSIUM
  10. CELEBREX [Suspect]
     Active Substance: CELECOXIB
     Indication: Product used for unknown indication
     Dosage: ROUTE OF ADMINISTRATION: UNKNOWN
  11. CETIRIZINE [Suspect]
     Active Substance: CETIRIZINE HYDROCHLORIDE
     Indication: Product used for unknown indication
     Dosage: ROUTE OF ADMINISTRATION: UNKNOWN
  12. COSENTYX [Suspect]
     Active Substance: SECUKINUMAB
     Indication: Product used for unknown indication
     Dosage: ROUTE OF ADMINISTRATION: UNKNOWN
  13. HUMIRA [Suspect]
     Active Substance: ADALIMUMAB
     Indication: Rheumatoid arthritis
     Dosage: DOSE FORM: SOLUTION SUBCUTANEOUS
  14. HUMIRA [Suspect]
     Active Substance: ADALIMUMAB
     Indication: Psoriatic arthropathy
  15. HYDROCORTISONE BUTYRATE [Suspect]
     Active Substance: HYDROCORTISONE BUTYRATE
     Indication: Rheumatoid arthritis
     Dosage: ROUTE OF ADMINISTRATION: OTHER
  16. HYDROCORTISONE BUTYRATE [Suspect]
     Active Substance: HYDROCORTISONE BUTYRATE
  17. HYDROCORTISONE BUTYRATE [Suspect]
     Active Substance: HYDROCORTISONE BUTYRATE
  18. HYDROCORTISONE SODIUM SUCCINATE [Suspect]
     Active Substance: HYDROCORTISONE SODIUM SUCCINATE
     Indication: Rheumatoid arthritis
     Dosage: ROUTE OF ADMINISTRATION: UNKNOWN
  19. HYDROCORTISONE SODIUM SUCCINATE [Suspect]
     Active Substance: HYDROCORTISONE SODIUM SUCCINATE
     Indication: Rheumatoid arthritis
     Dosage: DOSE FORM: POWDER FOR SOLUTION
  20. HYDROXYCHLOROQUINE SULFATE [Suspect]
     Active Substance: HYDROXYCHLOROQUINE SULFATE
     Indication: Systemic lupus erythematosus
  21. HYDROXYCHLOROQUINE SULFATE [Suspect]
     Active Substance: HYDROXYCHLOROQUINE SULFATE
     Indication: Rheumatoid arthritis
  22. HYDROXYCHLOROQUINE SULFATE [Suspect]
     Active Substance: HYDROXYCHLOROQUINE SULFATE
  23. HYDROXYCHLOROQUINE SULFATE [Suspect]
     Active Substance: HYDROXYCHLOROQUINE SULFATE
  24. HYDROXYCHLOROQUINE SULFATE [Suspect]
     Active Substance: HYDROXYCHLOROQUINE SULFATE
     Dosage: ROUTE OF ADMINISTRATION: UNKNOWN
  25. HYDROXYCHLOROQUINE SULFATE [Suspect]
     Active Substance: HYDROXYCHLOROQUINE SULFATE
  26. HYDROXYCHLOROQUINE SULFATE [Suspect]
     Active Substance: HYDROXYCHLOROQUINE SULFATE
  27. HYDROXYCHLOROQUINE SULFATE [Suspect]
     Active Substance: HYDROXYCHLOROQUINE SULFATE
  28. HYDROXYCHLOROQUINE SULFATE [Suspect]
     Active Substance: HYDROXYCHLOROQUINE SULFATE
     Dosage: ROUTE OF ADMINISTRATION: UNKNOWN
  29. HYDROXYCHLOROQUINE SULFATE [Suspect]
     Active Substance: HYDROXYCHLOROQUINE SULFATE
     Dosage: ROUTE OF ADMINISTRATION: UNKNOWN
  30. HYDROXYCHLOROQUINE SULFATE [Suspect]
     Active Substance: HYDROXYCHLOROQUINE SULFATE
     Dosage: ROUTE OF ADMINISTRATION: UNKNOWN
  31. HYDROXYCHLOROQUINE SULFATE [Suspect]
     Active Substance: HYDROXYCHLOROQUINE SULFATE
  32. HYDROXYCHLOROQUINE SULFATE [Suspect]
     Active Substance: HYDROXYCHLOROQUINE SULFATE
  33. HYDROXYCHLOROQUINE SULFATE [Suspect]
     Active Substance: HYDROXYCHLOROQUINE SULFATE
     Dosage: ROUTE OF ADMINISTRATION: UNKNOWN
  34. HYDROXYCHLOROQUINE SULFATE [Suspect]
     Active Substance: HYDROXYCHLOROQUINE SULFATE
     Dosage: ROUTE OF ADMINISTRATION: UNKNOWN
  35. HYDROXYCHLOROQUINE SULFATE [Suspect]
     Active Substance: HYDROXYCHLOROQUINE SULFATE
  36. HYDROXYCHLOROQUINE SULFATE [Suspect]
     Active Substance: HYDROXYCHLOROQUINE SULFATE
  37. HYDROXYCHLOROQUINE SULFATE [Suspect]
     Active Substance: HYDROXYCHLOROQUINE SULFATE
  38. HYDROXYCHLOROQUINE SULFATE [Suspect]
     Active Substance: HYDROXYCHLOROQUINE SULFATE
     Dosage: ROUTE OF ADMINISTRATION: UNKNOWN
  39. HYDROXYCHLOROQUINE SULFATE [Suspect]
     Active Substance: HYDROXYCHLOROQUINE SULFATE
     Dosage: ROUTE OF ADMINISTRATION: UNKNOWN
  40. HYDROXYCHLOROQUINE SULFATE [Suspect]
     Active Substance: HYDROXYCHLOROQUINE SULFATE
     Dosage: ROUTE OF ADMINISTRATION: UNKNOWN
  41. HYDROXYCHLOROQUINE SULFATE [Suspect]
     Active Substance: HYDROXYCHLOROQUINE SULFATE
  42. ADVIL [Suspect]
     Active Substance: IBUPROFEN
     Indication: Product used for unknown indication
     Dosage: ROUTE OF ADMINISTRATION: UNKNOWN
  43. INFLIXIMAB [Suspect]
     Active Substance: INFLIXIMAB
     Indication: Rheumatoid arthritis
     Dosage: ROUTE OF ADMINISTRATION: INTRAVENOUS DRIP
  44. INFLIXIMAB [Suspect]
     Active Substance: INFLIXIMAB
     Indication: Psoriatic arthropathy
  45. ISOPROPYL ALCOHOL [Suspect]
     Active Substance: ISOPROPYL ALCOHOL
     Indication: Product used for unknown indication
     Dosage: ROUTE OF ADMINISTRATION: UNKNOWN, DOSAGE FORM: LIQUID TOPICAL
  46. METHOTREXATE [Suspect]
     Active Substance: METHOTREXATE
     Indication: Rheumatoid arthritis
  47. METHOTREXATE [Suspect]
     Active Substance: METHOTREXATE
  48. METHOTREXATE [Suspect]
     Active Substance: METHOTREXATE
     Dosage: ROUTE OF ADMINISTRATION: UNKNOWN
  49. METHOTREXATE [Suspect]
     Active Substance: METHOTREXATE
     Dosage: ROUTE OF ADMINISTRATION: UNKNOWN
  50. METHOTREXATE [Suspect]
     Active Substance: METHOTREXATE
  51. METHOTREXATE [Suspect]
     Active Substance: METHOTREXATE
  52. METHOTREXATE [Suspect]
     Active Substance: METHOTREXATE
  53. METHOTREXATE [Suspect]
     Active Substance: METHOTREXATE
  54. METHOTREXATE [Suspect]
     Active Substance: METHOTREXATE
  55. METHOTREXATE [Suspect]
     Active Substance: METHOTREXATE
  56. METHOTREXATE [Suspect]
     Active Substance: METHOTREXATE
     Dosage: ROUTE OF ADMINISTRATION: UNKNOWN
  57. METHOTREXATE [Suspect]
     Active Substance: METHOTREXATE
  58. METHOTREXATE [Suspect]
     Active Substance: METHOTREXATE
  59. METHOTREXATE [Suspect]
     Active Substance: METHOTREXATE
     Dosage: ROUTE OF ADMINISTRATION: UNKNOWN
  60. METHOTREXATE [Suspect]
     Active Substance: METHOTREXATE
  61. METHOTREXATE [Suspect]
     Active Substance: METHOTREXATE
  62. METHOTREXATE [Suspect]
     Active Substance: METHOTREXATE
  63. METHOTREXATE [Suspect]
     Active Substance: METHOTREXATE
  64. METHOTREXATE [Suspect]
     Active Substance: METHOTREXATE
     Dosage: ROUTE OF ADMINISTRATION: INTRAVENOUS DRIP
  65. METHOTREXATE [Suspect]
     Active Substance: METHOTREXATE
     Dosage: ROUTE OF ADMINISTRATION: UNKNOWN
  66. METHOTREXATE [Suspect]
     Active Substance: METHOTREXATE
     Dosage: ROUTE OF ADMINISTRATION: UNKNOWN
  67. METHOTREXATE [Suspect]
     Active Substance: METHOTREXATE
     Dosage: ROUTE OF ADMINISTRATION: UNKNOWN
  68. METHOTREXATE [Suspect]
     Active Substance: METHOTREXATE
  69. METHOTREXATE [Suspect]
     Active Substance: METHOTREXATE
     Indication: Rheumatoid arthritis
  70. METHOTREXATE [Suspect]
     Active Substance: METHOTREXATE
  71. METHOTREXATE [Suspect]
     Active Substance: METHOTREXATE
     Dosage: ROUTE OF ADMINISTRATION: INTRAVENOUS DRIP
  72. METHOTREXATE [Suspect]
     Active Substance: METHOTREXATE
  73. METHOTREXATE [Suspect]
     Active Substance: METHOTREXATE
  74. METHOTREXATE [Suspect]
     Active Substance: METHOTREXATE
  75. METHOTREXATE [Suspect]
     Active Substance: METHOTREXATE
     Dosage: ROUTE OF ADMINISTRATION: UNKNOWN
  76. METHOTREXATE [Suspect]
     Active Substance: METHOTREXATE
  77. METHOTREXATE [Suspect]
     Active Substance: METHOTREXATE
  78. METHOTREXATE [Suspect]
     Active Substance: METHOTREXATE
  79. METHOTREXATE [Suspect]
     Active Substance: METHOTREXATE
  80. METHOTREXATE [Suspect]
     Active Substance: METHOTREXATE
  81. METHOTREXATE [Suspect]
     Active Substance: METHOTREXATE
  82. METHOTREXATE [Suspect]
     Active Substance: METHOTREXATE
  83. METHOTREXATE [Suspect]
     Active Substance: METHOTREXATE
  84. METHOTREXATE [Suspect]
     Active Substance: METHOTREXATE
  85. METHOTREXATE [Suspect]
     Active Substance: METHOTREXATE
  86. METHOTREXATE [Suspect]
     Active Substance: METHOTREXATE
  87. METHOTREXATE [Suspect]
     Active Substance: METHOTREXATE
  88. METHOTREXATE [Suspect]
     Active Substance: METHOTREXATE
  89. METHOTREXATE [Suspect]
     Active Substance: METHOTREXATE
  90. METHOTREXATE [Suspect]
     Active Substance: METHOTREXATE
  91. METHOTREXATE [Suspect]
     Active Substance: METHOTREXATE
     Dosage: ROUTE OF ADMINISTRATION: UNKNOWN
  92. METHOTREXATE [Suspect]
     Active Substance: METHOTREXATE
  93. METHOTREXATE [Suspect]
     Active Substance: METHOTREXATE
  94. METHOTREXATE [Suspect]
     Active Substance: METHOTREXATE
     Dosage: ROUTE OF ADMINISTRATION: UNKNOWN
  95. METHOTREXATE [Suspect]
     Active Substance: METHOTREXATE
  96. METHOTREXATE [Suspect]
     Active Substance: METHOTREXATE
     Dosage: ROUTE OF ADMINISTRATION: UNKNOWN
  97. METHOTREXATE [Suspect]
     Active Substance: METHOTREXATE
  98. METHOTREXATE [Suspect]
     Active Substance: METHOTREXATE
     Dosage: ROUTE OF ADMINISTRATION: UNKNOWN
  99. METHOTREXATE [Suspect]
     Active Substance: METHOTREXATE
  100. METHOTREXATE [Suspect]
     Active Substance: METHOTREXATE
  101. METHOTREXATE [Suspect]
     Active Substance: METHOTREXATE
  102. METHOTREXATE [Suspect]
     Active Substance: METHOTREXATE
  103. METHOTREXATE [Suspect]
     Active Substance: METHOTREXATE
  104. METHOTREXATE [Suspect]
     Active Substance: METHOTREXATE
  105. METHOTREXATE [Suspect]
     Active Substance: METHOTREXATE
  106. METHOTREXATE [Suspect]
     Active Substance: METHOTREXATE
     Dosage: ROUTE OF ADMINISTRATION: UNKNOWN
  107. METHOTREXATE [Suspect]
     Active Substance: METHOTREXATE
     Dosage: ROUTE OF ADMINISTRATION: UNKNOWN
  108. METHOTREXATE [Suspect]
     Active Substance: METHOTREXATE
     Dosage: ROUTE OF ADMINISTRATION: INTRAVENOUS DRIP
  109. METHOTREXATE [Suspect]
     Active Substance: METHOTREXATE
  110. METHOTREXATE [Suspect]
     Active Substance: METHOTREXATE
  111. MESALAMINE [Suspect]
     Active Substance: MESALAMINE
     Indication: Product used for unknown indication
     Dosage: ROUTE OF ADMINISTRATION: UNKNOWN
  112. NEOMYCIN [Suspect]
     Active Substance: NEOMYCIN
     Indication: Product used for unknown indication
     Dosage: ROUTE OF ADMINISTRATION: UNKNOWN
  113. ORENCIA [Suspect]
     Active Substance: ABATACEPT
     Indication: Rheumatoid arthritis
  114. ORENCIA [Suspect]
     Active Substance: ABATACEPT
     Indication: Psoriatic arthropathy
  115. ORENCIA [Suspect]
     Active Substance: ABATACEPT
  116. ORENCIA [Suspect]
     Active Substance: ABATACEPT
  117. ORENCIA [Suspect]
     Active Substance: ABATACEPT
  118. ORENCIA [Suspect]
     Active Substance: ABATACEPT
  119. OXYCODONE [Suspect]
     Active Substance: OXYCODONE
     Indication: Product used for unknown indication
     Dosage: ROUTE OF ADMINISTRATION: UNKNOWN
  120. OXYCODONE [Suspect]
     Active Substance: OXYCODONE
     Dosage: ROUTE OF ADMINISTRATION: UNKNOWN
  121. OXYCODONE [Suspect]
     Active Substance: OXYCODONE
     Dosage: ROUTE OF ADMINISTRATION: UNKNOWN
  122. OXYCODONE [Suspect]
     Active Substance: OXYCODONE
  123. PLAQUENIL [Suspect]
     Active Substance: HYDROXYCHLOROQUINE SULFATE
     Indication: Product used for unknown indication
     Dosage: ROUTE OF ADMINISTRATION: UNKNOWN
  124. PREDNISONE [Suspect]
     Active Substance: PREDNISONE
     Indication: Systemic lupus erythematosus
     Dosage: ROUTE OF ADMINISTRATION: UNKNOWN
  125. PREDNISONE [Suspect]
     Active Substance: PREDNISONE
     Indication: Synovitis
     Dosage: ROUTE OF ADMINISTRATION: UNKNOWN
  126. PREDNISONE [Suspect]
     Active Substance: PREDNISONE
     Indication: Rheumatoid arthritis
  127. PREDNISONE [Suspect]
     Active Substance: PREDNISONE
     Indication: Psoriatic arthropathy
     Dosage: ROUTE OF ADMINISTRATION: UNKNOWN
  128. PREDNISONE [Suspect]
     Active Substance: PREDNISONE
     Indication: Pemphigus
     Dosage: ROUTE OF ADMINISTRATION: INTRAVENOUS DRIP
  129. PREDNISONE [Suspect]
     Active Substance: PREDNISONE
     Indication: Condition aggravated
  130. PREDNISONE [Suspect]
     Active Substance: PREDNISONE
  131. PREDNISONE [Suspect]
     Active Substance: PREDNISONE
  132. PREDNISONE [Suspect]
     Active Substance: PREDNISONE
     Dosage: ROUTE OF ADMINISTRATION: UNKNOWN
  133. PREDNISONE [Suspect]
     Active Substance: PREDNISONE
     Dosage: ROUTE OF ADMINISTRATION: UNKNOWN
  134. PREDNISONE [Suspect]
     Active Substance: PREDNISONE
     Dosage: ROUTE OF ADMINISTRATION: UNKNOWN
  135. ALENDRONATE SODIUM [Suspect]
     Active Substance: ALENDRONATE SODIUM
     Indication: Product used for unknown indication
     Dosage: ROUTE OF ADMINISTRATION: UNKNOWN
  136. ALENDRONATE SODIUM [Suspect]
     Active Substance: ALENDRONATE SODIUM
     Dosage: ROUTE OF ADMINISTRATION: UNKNOWN
  137. ALENDRONATE SODIUM [Suspect]
     Active Substance: ALENDRONATE SODIUM
     Indication: Product used for unknown indication
     Dosage: ROUTE OF ADMINISTRATION: UNKNOWN
  138. BORAGE OIL [Suspect]
     Active Substance: BORAGE OIL
     Indication: Product used for unknown indication
     Dosage: ROUTE OF ADMINISTRATION: UNKNOWN
  139. CETIRIZINE HYDROCHLORIDE [Suspect]
     Active Substance: CETIRIZINE HYDROCHLORIDE
     Indication: Product used for unknown indication
     Dosage: ROUTE OF ADMINISTRATION: UNKNOWN
  140. COSENTYX [Suspect]
     Active Substance: SECUKINUMAB
     Indication: Product used for unknown indication
  141. DESOXIMETASONE [Suspect]
     Active Substance: DESOXIMETASONE
     Indication: Product used for unknown indication
     Dosage: ROUTE OF ADMINISTRATION: UNKNOWN
  142. DEXTROMETHORPHAN HYDROBROMIDE\PSEUDOEPHEDRINE HYDROCHLORIDE\TRIPROLIDI [Suspect]
     Active Substance: DEXTROMETHORPHAN HYDROBROMIDE\PSEUDOEPHEDRINE HYDROCHLORIDE\TRIPROLIDINE HYDROCHLORIDE
     Indication: Product used for unknown indication
     Dosage: ROUTE OF ADMINISTRATION: UNKNOWN
  143. HUMIRA [Suspect]
     Active Substance: ADALIMUMAB
     Indication: Rheumatoid arthritis
  144. HUMIRA [Suspect]
     Active Substance: ADALIMUMAB
     Indication: Psoriatic arthropathy
  145. HUMIRA [Suspect]
     Active Substance: ADALIMUMAB
  146. HUMIRA [Suspect]
     Active Substance: ADALIMUMAB
  147. HYDROCORTISONE ACETATE [Suspect]
     Active Substance: HYDROCORTISONE ACETATE
     Indication: Product used for unknown indication
     Dosage: ROUTE OF ADMINISTRATION: UNKNOWN
  148. HYDROXYCHLOROQUINE [Suspect]
     Active Substance: HYDROXYCHLOROQUINE
     Indication: Rheumatoid arthritis
     Dosage: ROUTE OF ADMINISTRATION: UNKNOWN
  149. HYDROXYCHLOROQUINE [Suspect]
     Active Substance: HYDROXYCHLOROQUINE
     Dosage: ROUTE OF ADMINISTRATION: UNKNOWN
  150. HYDROXYCHLOROQUINE [Suspect]
     Active Substance: HYDROXYCHLOROQUINE
  151. HYDROXYCHLOROQUINE [Suspect]
     Active Substance: HYDROXYCHLOROQUINE
  152. HYDROXYCHLOROQUINE [Suspect]
     Active Substance: HYDROXYCHLOROQUINE
  153. HYDROXYCHLOROQUINE [Suspect]
     Active Substance: HYDROXYCHLOROQUINE
     Dosage: ROUTE OF ADMINISTRATION: UNKNOWN
  154. HYDROXYCHLOROQUINE [Suspect]
     Active Substance: HYDROXYCHLOROQUINE
  155. HYDROXYCHLOROQUINE [Suspect]
     Active Substance: HYDROXYCHLOROQUINE
     Dosage: ROUTE OF ADMINISTRATION: UNKNOWN
  156. INFLIXIMAB [Suspect]
     Active Substance: INFLIXIMAB
     Indication: Rheumatoid arthritis
     Dosage: ROUTE OF ADMINISTRATION: INTRAVENOUS DRIP
  157. INFLIXIMAB [Suspect]
     Active Substance: INFLIXIMAB
     Indication: Psoriatic arthropathy
     Dosage: ROUTE OF ADMINISTRATION: INTRAVENOUS DRIP
  158. INFLIXIMAB [Suspect]
     Active Substance: INFLIXIMAB
     Dosage: ROUTE OF ADMINISTRATION: UNKNOWN
  159. INFLIXIMAB [Suspect]
     Active Substance: INFLIXIMAB
     Dosage: ROUTE OF ADMINISTRATION: UNKNOWN
  160. LISINOPRIL [Suspect]
     Active Substance: LISINOPRIL
     Indication: Product used for unknown indication
     Dosage: ROUTE OF ADMINISTRATION: UNKNOWN
  161. LYRICA [Suspect]
     Active Substance: PREGABALIN
     Indication: Product used for unknown indication
     Dosage: ROUTE OF ADMINISTRATION: UNKNOWN
  162. METHYLPREDNISOLONE SODIUM SUCCINATE [Suspect]
     Active Substance: METHYLPREDNISOLONE SODIUM SUCCINATE
     Indication: Product used for unknown indication
     Dosage: ROUTE OF ADMINISTRATION: UNKNOWN
  163. NAPROXEN [Suspect]
     Active Substance: NAPROXEN
     Indication: Product used for unknown indication
     Dosage: ROUTE OF ADMINISTRATION: UNKNOWN
  164. NAPROXEN SODIUM [Suspect]
     Active Substance: NAPROXEN SODIUM
     Indication: Rheumatoid arthritis
     Dosage: ROUTE OF ADMINISTRATION: UNKNOWN
  165. NAPROXEN SODIUM [Suspect]
     Active Substance: NAPROXEN SODIUM
     Dosage: ROUTE OF ADMINISTRATION: UNKNOWN
  166. ORENCIA [Suspect]
     Active Substance: ABATACEPT
     Indication: Rheumatoid arthritis
  167. ORENCIA [Suspect]
     Active Substance: ABATACEPT
     Indication: Psoriatic arthropathy
  168. OTEZLA [Suspect]
     Active Substance: APREMILAST
     Indication: Product used for unknown indication
     Dosage: ROUTE OF ADMINISTRATION: UNKNOWN
  169. OXYCODONE TEREPHTHALATE [Suspect]
     Active Substance: OXYCODONE TEREPHTHALATE
     Indication: Product used for unknown indication
     Dosage: ROUTE OF ADMINISTRATION: UNKNOWN
  170. PERIOGARD [Suspect]
     Active Substance: CHLORHEXIDINE GLUCONATE
     Indication: Product used for unknown indication
  171. PERIOGARD [Suspect]
     Active Substance: CHLORHEXIDINE GLUCONATE
     Dosage: ROUTE OF ADMINISTRATION: UNKNOWN
  172. PERIOGARD [Suspect]
     Active Substance: CHLORHEXIDINE GLUCONATE
  173. PERIOGARD [Suspect]
     Active Substance: CHLORHEXIDINE GLUCONATE
     Dosage: ROUTE OF ADMINISTRATION: UNKNOWN
  174. PHTHALYLSULFATHIAZOLE [Suspect]
     Active Substance: PHTHALYLSULFATHIAZOLE
     Indication: Rheumatoid arthritis
  175. PHTHALYLSULFATHIAZOLE [Suspect]
     Active Substance: PHTHALYLSULFATHIAZOLE
  176. PHTHALYLSULFATHIAZOLE [Suspect]
     Active Substance: PHTHALYLSULFATHIAZOLE
     Dosage: ROUTE OF ADMINISTRATION: UNKNOWN
  177. PHTHALYLSULFATHIAZOLE [Suspect]
     Active Substance: PHTHALYLSULFATHIAZOLE
  178. PHTHALYLSULFATHIAZOLE [Suspect]
     Active Substance: PHTHALYLSULFATHIAZOLE
  179. PHTHALYLSULFATHIAZOLE [Suspect]
     Active Substance: PHTHALYLSULFATHIAZOLE
  180. PHTHALYLSULFATHIAZOLE [Suspect]
     Active Substance: PHTHALYLSULFATHIAZOLE
  181. PHTHALYLSULFATHIAZOLE [Suspect]
     Active Substance: PHTHALYLSULFATHIAZOLE
     Dosage: ROUTE OF ADMINISTRATION: INTRAVENOUS DRIP
  182. PHTHALYLSULFATHIAZOLE [Suspect]
     Active Substance: PHTHALYLSULFATHIAZOLE
  183. PHTHALYLSULFATHIAZOLE [Suspect]
     Active Substance: PHTHALYLSULFATHIAZOLE
  184. PHTHALYLSULFATHIAZOLE [Suspect]
     Active Substance: PHTHALYLSULFATHIAZOLE
  185. PHTHALYLSULFATHIAZOLE [Suspect]
     Active Substance: PHTHALYLSULFATHIAZOLE
  186. PHTHALYLSULFATHIAZOLE [Suspect]
     Active Substance: PHTHALYLSULFATHIAZOLE
     Dosage: ROUTE OF ADMINISTRATION: UNKNOWN
  187. PHTHALYLSULFATHIAZOLE [Suspect]
     Active Substance: PHTHALYLSULFATHIAZOLE
     Dosage: ROUTE OF ADMINISTRATION: INTRAVENOUS DRIP
  188. PHTHALYLSULFATHIAZOLE [Suspect]
     Active Substance: PHTHALYLSULFATHIAZOLE
     Dosage: ROUTE OF ADMINISTRATION: UNKNOWN
  189. PHTHALYLSULFATHIAZOLE [Suspect]
     Active Substance: PHTHALYLSULFATHIAZOLE
  190. PHTHALYLSULFATHIAZOLE [Suspect]
     Active Substance: PHTHALYLSULFATHIAZOLE
  191. PHTHALYLSULFATHIAZOLE [Suspect]
     Active Substance: PHTHALYLSULFATHIAZOLE
     Dosage: ROUTE OF ADMINISTRATION: UNKNOWN
  192. PREDNISOLONE [Suspect]
     Active Substance: PREDNISOLONE
     Indication: Product used for unknown indication
     Dosage: ROUTE OF ADMINISTRATION: UNKNOWN
  193. PREDNISONE [Suspect]
     Active Substance: PREDNISONE
     Indication: Systemic lupus erythematosus
  194. PREDNISONE [Suspect]
     Active Substance: PREDNISONE
     Indication: Synovitis
  195. PREDNISONE [Suspect]
     Active Substance: PREDNISONE
     Indication: Rheumatoid arthritis
  196. PREDNISONE [Suspect]
     Active Substance: PREDNISONE
     Indication: Psoriatic arthropathy
  197. PREDNISONE [Suspect]
     Active Substance: PREDNISONE
     Indication: Pemphigus
  198. PREDNISONE [Suspect]
     Active Substance: PREDNISONE
     Indication: Condition aggravated
  199. PSEUDOEPHEDRINE [Suspect]
     Active Substance: PSEUDOEPHEDRINE
     Indication: Product used for unknown indication
     Dosage: ROUTE OF ADMINISTRATION: UNKNOWN
  200. PSEUDOEPHEDRINE HYDROCHLORIDE [Suspect]
     Active Substance: PSEUDOEPHEDRINE HYDROCHLORIDE
     Indication: Rheumatoid arthritis
     Dosage: ROUTE OF ADMINISTRATION: UNKNOWN
  201. PSEUDOEPHEDRINE HYDROCHLORIDE [Suspect]
     Active Substance: PSEUDOEPHEDRINE HYDROCHLORIDE
     Dosage: ROUTE OF ADMINISTRATION: UNKNOWN
  202. PSEUDOEPHEDRINE HYDROCHLORIDE [Suspect]
     Active Substance: PSEUDOEPHEDRINE HYDROCHLORIDE
     Dosage: ROUTE OF ADMINISTRATION: UNKNOWN
  203. RAMIPRIL [Suspect]
     Active Substance: RAMIPRIL
     Indication: Product used for unknown indication
     Dosage: ROUTE OF ADMINISTRATION: UNKNOWN
  204. RAMIPRIL [Suspect]
     Active Substance: RAMIPRIL
     Dosage: ROUTE OF ADMINISTRATION: UNKNOWN
  205. REMICADE [Suspect]
     Active Substance: INFLIXIMAB
     Indication: Rheumatoid arthritis
  206. RITUXIMAB [Suspect]
     Active Substance: RITUXIMAB
     Indication: Rheumatoid arthritis
     Dosage: ROUTE OF ADMINISTRATION: UNKNOWN
  207. RITUXIMAB [Suspect]
     Active Substance: RITUXIMAB
  208. RITUXIMAB [Suspect]
     Active Substance: RITUXIMAB
     Dosage: ROUTE OF ADMINISTRATION: INTRAVENOUS DRIP
  209. RITUXIMAB [Suspect]
     Active Substance: RITUXIMAB
     Dosage: ROUTE OF ADMINISTRATION: INTRAVENOUS DRIP
  210. RITUXIMAB [Suspect]
     Active Substance: RITUXIMAB
  211. RITUXIMAB [Suspect]
     Active Substance: RITUXIMAB
     Dosage: ROUTE OF ADMINISTRATION: INTRAVENOUS DRIP
  212. RITUXIMAB [Suspect]
     Active Substance: RITUXIMAB
     Dosage: ROUTE OF ADMINISTRATION: UNKNOWN
  213. DIETARY SUPPLEMENT\HERBALS [Suspect]
     Active Substance: DIETARY SUPPLEMENT\HERBALS
     Indication: Product used for unknown indication
     Dosage: ROUTE OF ADMINISTRATION: UNKNOWN
  214. DICLOFENAC SODIUM [Suspect]
     Active Substance: DICLOFENAC SODIUM
     Indication: Rheumatoid arthritis
     Dosage: ROUTE OF ADMINISTRATION: UNKNOWN
  215. HYDROCORTISONE [Suspect]
     Active Substance: HYDROCORTISONE
     Indication: Rheumatoid arthritis
     Dosage: ROUTE OF ADMINISTRATION: UNKNOWN
  216. HYDROCORTISONE [Suspect]
     Active Substance: HYDROCORTISONE
  217. HYDROCORTISONE [Suspect]
     Active Substance: HYDROCORTISONE
     Dosage: ROUTE OF ADMINISTRATION: UNKNOWN
  218. HYDROCORTISONE [Suspect]
     Active Substance: HYDROCORTISONE
  219. HYDROCORTISONE [Suspect]
     Active Substance: HYDROCORTISONE
     Dosage: ROUTE OF ADMINISTRATION: UNKNOWN
  220. HYDROCORTISONE [Suspect]
     Active Substance: HYDROCORTISONE
     Dosage: ROUTE OF ADMINISTRATION: UNKNOWN
  221. HYDROCORTISONE [Suspect]
     Active Substance: HYDROCORTISONE
     Indication: Rheumatoid arthritis
  222. MYCOPHENOLATE MOFETIL [Suspect]
     Active Substance: MYCOPHENOLATE MOFETIL
     Indication: Product used for unknown indication
     Dosage: ROUTE OF ADMINISTRATION: UNKNOWN
  223. SIMPONI [Suspect]
     Active Substance: GOLIMUMAB
     Indication: Rheumatoid arthritis
     Dosage: ROUTE OF ADMINISTRATION: UNKNOWN?DOSE FORM: SOLUTION SUBCUTANEOUS
  224. SIMPONI [Suspect]
     Active Substance: GOLIMUMAB
     Indication: Rheumatoid arthritis
  225. SIMPONI [Suspect]
     Active Substance: GOLIMUMAB
  226. SIMPONI [Suspect]
     Active Substance: GOLIMUMAB
     Dosage: ROUTE OF ADMINISTRATION: UNKNOWN
  227. SIMPONI [Suspect]
     Active Substance: GOLIMUMAB
  228. STELARA [Suspect]
     Active Substance: USTEKINUMAB
     Indication: Product used for unknown indication
     Dosage: DOSE FORM: SOLUTION SUBCUTANEOUS?ROUTE OF ADMINISTRATION: UNKNOWN
  229. SULFAMETHOXAZOLE [Suspect]
     Active Substance: SULFAMETHOXAZOLE
     Indication: Product used for unknown indication
  230. SULFAMETHOXAZOLE\TRIMETHOPRIM [Suspect]
     Active Substance: SULFAMETHOXAZOLE\TRIMETHOPRIM
     Indication: Product used for unknown indication
  231. SULFAMETHOXAZOLE\TRIMETHOPRIM [Suspect]
     Active Substance: SULFAMETHOXAZOLE\TRIMETHOPRIM
     Dosage: ROUTE OF ADMINISTRATION: UNKNOWN
  232. SULFASALAZINE [Suspect]
     Active Substance: SULFASALAZINE
     Indication: Rheumatoid arthritis
  233. SULFASALAZINE [Suspect]
     Active Substance: SULFASALAZINE
     Dosage: ROUTE OF ADMINISTRATION: UNKNOWN
  234. SULFASALAZINE [Suspect]
     Active Substance: SULFASALAZINE
     Dosage: ROUTE OF ADMINISTRATION: UNKNOWN
  235. SULFASALAZINE [Suspect]
     Active Substance: SULFASALAZINE
     Dosage: ROUTE OF ADMINISTRATION: UNKNOWN
  236. SULFASALAZINE [Suspect]
     Active Substance: SULFASALAZINE
  237. SULFASALAZINE [Suspect]
     Active Substance: SULFASALAZINE
     Dosage: ROUTE OF ADMINISTRATION: UNKNOWN
  238. SULFASALAZINE [Suspect]
     Active Substance: SULFASALAZINE
  239. SULFASALAZINE [Suspect]
     Active Substance: SULFASALAZINE
  240. SULFASALAZINE [Suspect]
     Active Substance: SULFASALAZINE
  241. SULFASALAZINE [Suspect]
     Active Substance: SULFASALAZINE
  242. SULFASALAZINE [Suspect]
     Active Substance: SULFASALAZINE
  243. SULFASALAZINE [Suspect]
     Active Substance: SULFASALAZINE
     Dosage: ROUTE OF ADMINISTRATION: UNKNOWN
  244. SULFASALAZINE [Suspect]
     Active Substance: SULFASALAZINE
  245. SULFASALAZINE [Suspect]
     Active Substance: SULFASALAZINE
  246. SULFASALAZINE [Suspect]
     Active Substance: SULFASALAZINE
  247. SULFASALAZINE [Suspect]
     Active Substance: SULFASALAZINE
     Dosage: ROUTE OF ADMINISTRATION: UNKNOWN
  248. SULFASALAZINE [Suspect]
     Active Substance: SULFASALAZINE
  249. SULFASALAZINE [Suspect]
     Active Substance: SULFASALAZINE
  250. SULFASALAZINE [Suspect]
     Active Substance: SULFASALAZINE
  251. SULFASALAZINE [Suspect]
     Active Substance: SULFASALAZINE
  252. SULFASALAZINE [Suspect]
     Active Substance: SULFASALAZINE
  253. SULFASALAZINE [Suspect]
     Active Substance: SULFASALAZINE
  254. SULFASALAZINE [Suspect]
     Active Substance: SULFASALAZINE
  255. SULFASALAZINE [Suspect]
     Active Substance: SULFASALAZINE
  256. SULFASALAZINE [Suspect]
     Active Substance: SULFASALAZINE
  257. SULFASALAZINE [Suspect]
     Active Substance: SULFASALAZINE
  258. SULFASALAZINE [Suspect]
     Active Substance: SULFASALAZINE
  259. SULFASALAZINE [Suspect]
     Active Substance: SULFASALAZINE
  260. VITAMIN C [Suspect]
     Active Substance: ASCORBIC ACID
     Indication: Product used for unknown indication
     Dosage: ROUTE OF ADMINISTRATION: UNKNOWN
  261. VITAMIN C [Suspect]
     Active Substance: ASCORBIC ACID
     Dosage: ROUTE OF ADMINISTRATION: UNKNOWN
  262. XELJANZ [Suspect]
     Active Substance: TOFACITINIB CITRATE
     Indication: Rheumatoid arthritis
     Dosage: ROUTE OF ADMINISTRATION: UNKNOWN
  263. ACETAMINOPHEN [Suspect]
     Active Substance: ACETAMINOPHEN
     Indication: Product used for unknown indication
     Dosage: ROUTE OF ADMINISTRATION: UNKNOWN
  264. ACETAMINOPHEN [Suspect]
     Active Substance: ACETAMINOPHEN
     Dosage: ROUTE OF ADMINISTRATION: UNKNOWN
  265. ACETAMINOPHEN\CAFFEINE\CODEINE PHOSPHATE [Suspect]
     Active Substance: ACETAMINOPHEN\CAFFEINE\CODEINE PHOSPHATE
     Indication: Product used for unknown indication
     Dosage: ROUTE OF ADMINISTRATION: UNKNOWN
  266. CETIRIZINE HYDROCHLORIDE [Suspect]
     Active Substance: CETIRIZINE HYDROCHLORIDE
     Indication: Urticaria
  267. CETIRIZINE HYDROCHLORIDE [Suspect]
     Active Substance: CETIRIZINE HYDROCHLORIDE
     Indication: Rheumatoid arthritis
     Dosage: ROUTE OF ADMINISTRATION: UNKNOWN
  268. CETIRIZINE HYDROCHLORIDE [Suspect]
     Active Substance: CETIRIZINE HYDROCHLORIDE
     Dosage: ROUTE OF ADMINISTRATION: UNKNOWN
  269. CETIRIZINE HYDROCHLORIDE [Suspect]
     Active Substance: CETIRIZINE HYDROCHLORIDE
  270. CETIRIZINE HYDROCHLORIDE [Suspect]
     Active Substance: CETIRIZINE HYDROCHLORIDE
  271. CETIRIZINE HYDROCHLORIDE [Suspect]
     Active Substance: CETIRIZINE HYDROCHLORIDE
     Dosage: ROUTE OF ADMINISTRATION: UNKNOWN
  272. CETIRIZINE HYDROCHLORIDE [Suspect]
     Active Substance: CETIRIZINE HYDROCHLORIDE
  273. CETIRIZINE HYDROCHLORIDE\PSEUDOEPHEDRINE HYDROCHLORIDE [Suspect]
     Active Substance: CETIRIZINE HYDROCHLORIDE\PSEUDOEPHEDRINE HYDROCHLORIDE
     Indication: Product used for unknown indication
     Dosage: ROUTE OF ADMINISTRATION: UNKNOWN.?DOSE FORM: TABLET (EXTENDED- RELEASE)
  274. REMICADE [Suspect]
     Active Substance: INFLIXIMAB
     Indication: Rheumatoid arthritis
     Dosage: DOSE FORM: POWDER FOR SOLUTION INTRAVENOUS?ROUTE OF ADMINISTRATION: UNKNOWN
  275. RITUXIMAB [Suspect]
     Active Substance: RITUXIMAB
     Indication: Rheumatoid arthritis
     Dosage: ROUTE OF ADMINISTRATION: UNKNOWN
  276. APREMILAST [Suspect]
     Active Substance: APREMILAST
     Indication: Product used for unknown indication
     Dosage: ROUTE OF ADMINISTRATION: UNKNOWN
  277. DICLOFENAC SODIUM [Suspect]
     Active Substance: DICLOFENAC SODIUM
     Indication: Rheumatoid arthritis
     Dosage: ROUTE OF ADMINISTRATION: UNKNOWN
  278. DICLOFENAC SODIUM [Suspect]
     Active Substance: DICLOFENAC SODIUM
     Dosage: ROUTE OF ADMINISTRATION: OTHER
  279. DICLOFENAC SODIUM [Suspect]
     Active Substance: DICLOFENAC SODIUM
     Dosage: ROUTE OF ADMINISTRATION: OPHTHALMIC
  280. DICLOFENAC SODIUM [Suspect]
     Active Substance: DICLOFENAC SODIUM
     Dosage: ROUTE OF ADMINISTRATION: OPHTHALMIC
  281. DICLOFENAC SODIUM [Suspect]
     Active Substance: DICLOFENAC SODIUM
  282. DICLOFENAC SODIUM [Suspect]
     Active Substance: DICLOFENAC SODIUM
     Dosage: ROUTE OF ADMINISTRATION: UNKNOWN
  283. DICLOFENAC SODIUM [Suspect]
     Active Substance: DICLOFENAC SODIUM
     Dosage: ROUTE OF ADMINISTRATION: UNKNOWN
  284. DICLOFENAC SODIUM [Suspect]
     Active Substance: DICLOFENAC SODIUM
     Dosage: ROUTE OF ADMINISTRATION: UNKNOWN
  285. DICLOFENAC SODIUM [Suspect]
     Active Substance: DICLOFENAC SODIUM
     Dosage: ROUTE OF ADMINISTRATION: OPHTHALMIC
  286. DICLOFENAC SODIUM [Suspect]
     Active Substance: DICLOFENAC SODIUM
     Dosage: ROUTE OF ADMINISTRATION: OPHTHALMIC
  287. DICLOFENAC SODIUM [Suspect]
     Active Substance: DICLOFENAC SODIUM
     Dosage: ROUTE OF ADMINISTRATION: UNKNOWN
  288. DICLOFENAC SODIUM [Suspect]
     Active Substance: DICLOFENAC SODIUM
  289. DICLOFENAC SODIUM [Suspect]
     Active Substance: DICLOFENAC SODIUM
  290. DICLOFENAC SODIUM [Suspect]
     Active Substance: DICLOFENAC SODIUM
     Dosage: ROUTE OF ADMINISTRATION: UNKNOWN
  291. MOXIFLOXACIN HYDROCHLORIDE [Suspect]
     Active Substance: MOXIFLOXACIN HYDROCHLORIDE
     Indication: Product used for unknown indication
     Dosage: DOSE FORM: SOLUTION OPHTHALMIC
  292. PANTOPRAZOLE SODIUM [Suspect]
     Active Substance: PANTOPRAZOLE SODIUM
     Indication: Product used for unknown indication
     Dosage: ROUTE OF ADMINISTRATION: UNKNOWN?DOSE FORM: TABLET (DELAYED- RELEASE)
  293. PANTOPRAZOLE SODIUM [Suspect]
     Active Substance: PANTOPRAZOLE SODIUM
     Indication: Product used for unknown indication
     Dosage: ROUTE OF ADMINISTRATION: UNKNOWN
  294. PANTOPRAZOLE SODIUM [Suspect]
     Active Substance: PANTOPRAZOLE SODIUM
  295. PREGABALIN [Suspect]
     Active Substance: PREGABALIN
     Indication: Product used for unknown indication
     Dosage: ROUTE OF ADMINISTRATION: UNKNOWN
  296. SULFASALAZINE [Suspect]
     Active Substance: SULFASALAZINE
     Indication: Rheumatoid arthritis
     Dosage: ROUTE OF ADMINISTRATION: UNKNOWN
  297. TRIAMCINOLONE ACETONIDE [Suspect]
     Active Substance: TRIAMCINOLONE ACETONIDE
     Indication: Rheumatoid arthritis
     Dosage: DOSE FORM: SUSPENSION INTRA- ARTICULAR
  298. PREDNISONE [Suspect]
     Active Substance: PREDNISONE
     Indication: Rheumatoid arthritis
  299. XELJANZ [Suspect]
     Active Substance: TOFACITINIB CITRATE
     Indication: Rheumatoid arthritis
  300. XELJANZ [Suspect]
     Active Substance: TOFACITINIB CITRATE
     Dosage: ROUTE OF ADMINISTRATION: UNKNOWN
  301. XELJANZ [Suspect]
     Active Substance: TOFACITINIB CITRATE
     Dosage: ROUTE OF ADMINISTRATION: UNKNOWN
  302. XELJANZ [Suspect]
     Active Substance: TOFACITINIB CITRATE
     Dosage: ROUTE OF ADMINISTRATION: UNKNOWN
  303. XELJANZ [Suspect]
     Active Substance: TOFACITINIB CITRATE
     Dosage: ROUTE OF ADMINISTRATION: UNKNOWN
  304. XELJANZ [Suspect]
     Active Substance: TOFACITINIB CITRATE
  305. ACTEMRA [Suspect]
     Active Substance: TOCILIZUMAB
     Indication: Product used for unknown indication
     Dosage: ROUTE OF ADMINISTRATION: UNKNOWN

REACTIONS (12)
  - Delirium [Fatal]
  - Depression [Fatal]
  - Disability [Fatal]
  - Drug intolerance [Fatal]
  - Duodenal ulcer perforation [Fatal]
  - Drug hypersensitivity [Fatal]
  - Dyspepsia [Fatal]
  - Decreased appetite [Fatal]
  - Dry mouth [Fatal]
  - Dislocation of vertebra [Fatal]
  - Drug-induced liver injury [Fatal]
  - Ear infection [Fatal]
